FAERS Safety Report 24093339 (Version 1)
Quarter: 2024Q3

REPORT INFORMATION
  Report Type: Spontaneous
  Country: CN (occurrence: CN)
  Receive Date: 20240715
  Receipt Date: 20240715
  Transmission Date: 20241017
  Serious: Yes (Other)
  Sender: MERCK
  Company Number: CN-009507513-2407CHN008415

PATIENT
  Age: 74 Year
  Sex: Female
  Weight: 48 kg

DRUGS (3)
  1. LAGEVRIO [Suspect]
     Active Substance: MOLNUPIRAVIR
     Indication: Antiviral treatment
     Dosage: 0.8 G, BID, ORALLY
     Route: 048
     Dates: start: 20240703, end: 20240706
  2. CEFTAZIDIME [Suspect]
     Active Substance: CEFTAZIDIME
     Indication: Anti-infective therapy
     Dosage: 1 G, TID, IV DRIP
     Route: 041
     Dates: start: 20240703, end: 20240706
  3. SODIUM CHLORIDE [Concomitant]
     Active Substance: SODIUM CHLORIDE
     Indication: Medication dilution
     Dosage: 100 ML, TID, IV DRIP
     Route: 041
     Dates: start: 20240703, end: 20240706

REACTIONS (1)
  - Erythema [Not Recovered/Not Resolved]

NARRATIVE: CASE EVENT DATE: 20240706
